FAERS Safety Report 10702962 (Version 1)
Quarter: 2015Q1

REPORT INFORMATION
  Report Type: Spontaneous
  Country: AT (occurrence: AT)
  Receive Date: 20150110
  Receipt Date: 20150110
  Transmission Date: 20150721
  Serious: Yes (Death)
  Sender: FDA-Public Use
  Company Number: AT-MYLANLABS-2015M1000199

PATIENT

DRUGS (12)
  1. FLUDARABINE [Suspect]
     Active Substance: FLUDARABINE PHOSPHATE
     Dosage: RECEIVED 3 CYCLES
     Route: 048
     Dates: start: 200601
  2. RITUXIMAB [Suspect]
     Active Substance: RITUXIMAB
     Dosage: RECEIVED 4 CYCLES
     Route: 065
     Dates: start: 200112
  3. LENALIDOMIDE [Concomitant]
     Active Substance: LENALIDOMIDE
     Indication: CHRONIC LYMPHOCYTIC LEUKAEMIA
     Route: 065
  4. FLUDARABINE [Suspect]
     Active Substance: FLUDARABINE PHOSPHATE
     Dosage: RECEIVED 3 CYCLES
     Route: 042
     Dates: end: 200607
  5. CYCLOPHOSPHAMIDE. [Suspect]
     Active Substance: CYCLOPHOSPHAMIDE
     Indication: CHRONIC LYMPHOCYTIC LEUKAEMIA
     Dosage: RECEIVED 4 CYCLES
     Route: 065
     Dates: start: 200112
  6. FLUDARABINE [Suspect]
     Active Substance: FLUDARABINE PHOSPHATE
     Indication: CHRONIC LYMPHOCYTIC LEUKAEMIA
     Dosage: RECEIVED 5 CYCLES, AND THEN RECEIVED 3 CYCLES ALONG WITH RITUXIMAB
     Route: 065
     Dates: start: 1999
  7. FLUDARABINE [Suspect]
     Active Substance: FLUDARABINE PHOSPHATE
     Dosage: RECEIVED 4 CYCLES
     Route: 065
     Dates: start: 200112
  8. RITUXIMAB [Suspect]
     Active Substance: RITUXIMAB
     Indication: CHRONIC LYMPHOCYTIC LEUKAEMIA
     Dosage: RECEIVED 3 CYCLES ALONG WITH FLUDARABINE
     Route: 065
  9. RITUXIMAB [Suspect]
     Active Substance: RITUXIMAB
     Dosage: RECEIVED 3 CYCLES
     Route: 048
     Dates: start: 200601
  10. RITUXIMAB [Suspect]
     Active Substance: RITUXIMAB
     Dosage: RECEIVED 3 CYCLES
     Route: 042
     Dates: end: 200607
  11. CYCLOPHOSPHAMIDE. [Suspect]
     Active Substance: CYCLOPHOSPHAMIDE
     Dosage: RECEIVED 3 CYCLES
     Route: 042
     Dates: end: 200607
  12. CYCLOPHOSPHAMIDE. [Suspect]
     Active Substance: CYCLOPHOSPHAMIDE
     Dosage: RECEIVED 3 CYCLES
     Route: 048
     Dates: start: 200601

REACTIONS (10)
  - Progressive multifocal leukoencephalopathy [Fatal]
  - Pneumonia aspiration [Fatal]
  - JC virus infection [Fatal]
  - Graft versus host disease [None]
  - Stem cell transplant [None]
  - Cystitis [None]
  - Pneumonia viral [None]
  - Autoimmune haemolytic anaemia [None]
  - Pseudomonal sepsis [None]
  - Clostridial infection [None]
